FAERS Safety Report 24052125 (Version 1)
Quarter: 2024Q3

REPORT INFORMATION
  Report Type: Spontaneous
  Country: EG (occurrence: EG)
  Receive Date: 20240704
  Receipt Date: 20240704
  Transmission Date: 20241016
  Serious: Yes (Hospitalization)
  Sender: PFIZER
  Company Number: EG-PFIZER INC-PV202400086608

PATIENT
  Age: 35 Year
  Sex: Female
  Weight: 63 kg

DRUGS (2)
  1. CARBOPLATIN [Suspect]
     Active Substance: CARBOPLATIN
     Dosage: 581 MG, CYCLIC, 2ND CYCLE (DAY 1,EVERY 21 DAYS)
     Route: 042
     Dates: start: 20240518
  2. PACLITAXEL [Suspect]
     Active Substance: PACLITAXEL
     Dosage: 133.6 MG, CYCLIC, DAY 8, (DAY 1, 8,15 EVERY 21 DAYS)
     Route: 042
     Dates: start: 20240525

REACTIONS (2)
  - Stomatitis [Recovered/Resolved]
  - Dysphonia [Recovering/Resolving]

NARRATIVE: CASE EVENT DATE: 20240527
